FAERS Safety Report 6829347-6 (Version None)
Quarter: 2010Q2

REPORT INFORMATION
  Report Type: 
  Country: None (occurrence: None)
  Receive Date: 20100630
  Receipt Date: 20100616
  Transmission Date: 20101027
  Serious: Yes (Other)
  Sender: FDA-Public Use
  Company Number: AECAN201000064

PATIENT
  Age: 86 Year
  Sex: Female
  Weight: 48 kg

DRUGS (13)
  1. GAMUNEX [Suspect]
     Indication: PRIMARY IMMUNODEFICIENCY SYNDROME
     Dosage: 6 GM; 1X; IV, 1X; IV, 40 ML; 1X; IV, 20 GM; IV, 20 GM; QM; IV
     Route: 042
     Dates: start: 20090715, end: 20090715
  2. GAMUNEX [Suspect]
     Indication: PRIMARY IMMUNODEFICIENCY SYNDROME
     Dosage: 6 GM; 1X; IV, 1X; IV, 40 ML; 1X; IV, 20 GM; IV, 20 GM; QM; IV
     Route: 042
     Dates: start: 20091124, end: 20091124
  3. GAMUNEX [Suspect]
     Indication: PRIMARY IMMUNODEFICIENCY SYNDROME
     Dosage: 6 GM; 1X; IV, 1X; IV, 40 ML; 1X; IV, 20 GM; IV, 20 GM; QM; IV
     Route: 042
     Dates: start: 20040101
  4. GAMUNEX [Suspect]
     Indication: PRIMARY IMMUNODEFICIENCY SYNDROME
     Dosage: 6 GM; 1X; IV, 1X; IV, 40 ML; 1X; IV, 20 GM; IV, 20 GM; QM; IV
     Route: 042
     Dates: start: 20090422
  5. GAMUNEX [Suspect]
     Indication: PRIMARY IMMUNODEFICIENCY SYNDROME
     Dosage: 6 GM; 1X; IV, 1X; IV, 40 ML; 1X; IV, 20 GM; IV, 20 GM; QM; IV
     Route: 042
     Dates: start: 20090520
  6. GAMUNEX [Suspect]
     Indication: PRIMARY IMMUNODEFICIENCY SYNDROME
     Dosage: 6 GM; 1X; IV, 1X; IV, 40 ML; 1X; IV, 20 GM; IV, 20 GM; QM; IV
     Route: 042
     Dates: start: 20090617
  7. GAMUNEX [Suspect]
  8. GAMUNEX [Suspect]
  9. IGIVNEX [Suspect]
     Indication: PRIMARY IMMUNODEFICIENCY SYNDROME
     Dosage: IV
     Route: 042
     Dates: end: 20091124
  10. IGIVNEX [Suspect]
     Indication: PRIMARY IMMUNODEFICIENCY SYNDROME
     Dosage: IV
     Route: 042
     Dates: start: 20100217
  11. CALCIUM [Concomitant]
  12. BISPHOSPHONATES [Concomitant]
  13. VITAMIN D [Concomitant]

REACTIONS (8)
  - BACK PAIN [None]
  - CHEST PAIN [None]
  - FACIAL PAIN [None]
  - HYPERSENSITIVITY [None]
  - HYPERTENSION [None]
  - PAROTID DUCT OBSTRUCTION [None]
  - PRESYNCOPE [None]
  - PYREXIA [None]
